FAERS Safety Report 6468113-0 (Version None)
Quarter: 2009Q4

REPORT INFORMATION
  Report Type: 
  Country: None (occurrence: None)
  Receive Date: 20091127
  Receipt Date: 20091113
  Transmission Date: 20100525
  Serious: Yes (Hospitalization, Other)
  Sender: FDA-Public Use
  Company Number: 2009BI003729

PATIENT
  Age: 69 Year
  Sex: Female

DRUGS (13)
  1. ZEVALIN [Suspect]
     Indication: DIFFUSE LARGE B-CELL LYMPHOMA
     Dosage: 14 BQ; 1X; IV
     Route: 042
     Dates: start: 20081205, end: 20081205
  2. RITUXIMAB [Concomitant]
  3. CYCLOPHOSPHAMIDE [Concomitant]
  4. DOXORUBICIN HCL [Concomitant]
  5. VINCRISTINE [Concomitant]
  6. PREDNISONE [Concomitant]
  7. METHOTREXATE [Concomitant]
  8. TENORMIN [Concomitant]
  9. PROZAC [Concomitant]
  10. LEXOMIL [Concomitant]
  11. LENOGRASTIM [Concomitant]
  12. SKENAN [Concomitant]
  13. PYOSTACINE [Concomitant]

REACTIONS (3)
  - BONE MARROW FAILURE [None]
  - ESCHERICHIA URINARY TRACT INFECTION [None]
  - STAPHYLOCOCCAL SEPSIS [None]
